FAERS Safety Report 11341554 (Version 2)
Quarter: 2015Q3

REPORT INFORMATION
  Report Type: Report from Study
  Country: CA (occurrence: CA)
  Receive Date: 20150805
  Receipt Date: 20150909
  Transmission Date: 20151125
  Serious: Yes (Hospitalization, Other)
  Sender: FDA-Public Use
  Company Number: PHHY2014CA144207

PATIENT
  Age: 68 Year
  Sex: Female

DRUGS (7)
  1. POTASSIUM [Concomitant]
     Active Substance: POTASSIUM
     Indication: PRODUCT USED FOR UNKNOWN INDICATION
     Dosage: TID
     Route: 065
  2. EXJADE [Suspect]
     Active Substance: DEFERASIROX
     Dosage: 1500 MG, QD
     Route: 048
     Dates: start: 20150128
  3. FOLATE [Concomitant]
     Active Substance: FOLATE SODIUM
     Indication: PRODUCT USED FOR UNKNOWN INDICATION
     Route: 065
  4. EXJADE [Suspect]
     Active Substance: DEFERASIROX
     Dosage: 1500 MG, QD
     Route: 048
  5. EXJADE [Suspect]
     Active Substance: DEFERASIROX
     Indication: IRON OVERLOAD
     Dosage: 1000 MG, QD
     Route: 048
     Dates: start: 20141021
  6. LASIX [Concomitant]
     Active Substance: FUROSEMIDE
     Indication: PRODUCT USED FOR UNKNOWN INDICATION
     Route: 065
  7. VITAMIN D [Concomitant]
     Active Substance: CHOLECALCIFEROL
     Indication: PRODUCT USED FOR UNKNOWN INDICATION
     Route: 065

REACTIONS (33)
  - Faeces discoloured [Unknown]
  - Haemorrhoids [Unknown]
  - Pneumothorax [Unknown]
  - Hypotension [Unknown]
  - Pain in extremity [Unknown]
  - Fluid retention [Unknown]
  - Rectal tenesmus [Unknown]
  - Fatigue [Unknown]
  - Lung infection [Unknown]
  - Skin disorder [Unknown]
  - Feeling cold [Unknown]
  - Peripheral swelling [Unknown]
  - Pain [Unknown]
  - Abdominal distension [Unknown]
  - Pneumonia [Unknown]
  - Gastric dilatation [Unknown]
  - Breast oedema [Unknown]
  - Oedema [Unknown]
  - Skin tightness [Unknown]
  - Back pain [Unknown]
  - Abdominal discomfort [Unknown]
  - Oedema peripheral [Unknown]
  - Chromaturia [Unknown]
  - Hernia [Unknown]
  - Asthenia [Unknown]
  - Faeces soft [Unknown]
  - Skin induration [Unknown]
  - Diarrhoea [Unknown]
  - Infection [Unknown]
  - Breast disorder [Unknown]
  - Joint swelling [Unknown]
  - Spleen disorder [Unknown]
  - Muscle spasms [Unknown]

NARRATIVE: CASE EVENT DATE: 20141101
